FAERS Safety Report 7570202-4 (Version None)
Quarter: 2011Q2

REPORT INFORMATION
  Report Type: 
  Country: None (occurrence: None)
  Receive Date: 20110624
  Receipt Date: 20110609
  Transmission Date: 20111010
  Serious: Yes (Congenital Anomaly)
  Sender: FDA-Public Use
  Company Number: FI-WATSON-2011-09094

PATIENT

DRUGS (1)
  1. FLUOXETINE HCL [Suspect]
     Indication: DRUG EXPOSURE DURING PREGNANCY
     Route: 064

REACTIONS (2)
  - FOETAL ALCOHOL SYNDROME [None]
  - VENTRICULAR SEPTAL DEFECT [None]
